FAERS Safety Report 18504557 (Version 4)
Quarter: 2020Q4

REPORT INFORMATION
  Report Type: Report from Study
  Country: MX (occurrence: MX)
  Receive Date: 20201114
  Receipt Date: 20201223
  Transmission Date: 20210114
  Serious: Yes (Other)
  Sender: FDA-Public Use
  Company Number: NVSC2020MX299422

PATIENT
  Age: 80 Year
  Sex: Female
  Weight: 63 kg

DRUGS (13)
  1. TRAMADOL/PARACETAMOL [Concomitant]
     Active Substance: ACETAMINOPHEN\TRAMADOL
     Indication: SPINAL PAIN
     Dosage: 1 UNK, QD (1 AND A HALF YEARS AGO)
     Route: 048
  2. ATORVASTATIN [Suspect]
     Active Substance: ATORVASTATIN
     Indication: BLOOD CHOLESTEROL INCREASED
     Dosage: 1, QD (5 YEARS AGO)
     Route: 048
  3. METFORMIN [Suspect]
     Active Substance: METFORMIN HYDROCHLORIDE
     Indication: BLOOD GLUCOSE INCREASED
     Dosage: 1 UNK, QD (5 YEARS AGO)
     Route: 048
  4. SERC [Concomitant]
     Indication: DIZZINESS
     Dosage: 1UNK, QD (1 YEAR AGO)
     Route: 048
  5. TASIGNA [Suspect]
     Active Substance: NILOTINIB
     Dosage: 800 MG, QD (5 AND A HALF YEARS AGO)
     Route: 048
  6. RIOPAN [Concomitant]
     Indication: GASTRITIS
     Dosage: 1 UNK, PRN (ONLY IF NEEDED / DAILY (AS REPORTED) STARTED MANY YEARS AGO)
     Route: 048
  7. PINAVERIUM BROMIDE [Concomitant]
     Active Substance: PINAVERIUM BROMIDE
     Indication: COLITIS
     Dosage: 1 UNK, QD (MANY YEARS AGO (BEFORE THE MEDICATION NILOTINIB))
     Route: 048
  8. TASIGNA [Suspect]
     Active Substance: NILOTINIB
     Indication: CHRONIC MYELOID LEUKAEMIA
     Dosage: 4 UNK, QD (TABLET) ((DID NOT REMEMBER THE DOSE UNIT) (STARTED 5 YEARS AND A HALF AGO)
     Route: 048
  9. OMEPRAZOLE. [Concomitant]
     Active Substance: OMEPRAZOLE
     Indication: GASTRITIS
     Dosage: UNK UNK, QD ( 1 OR 2 (AS REPORTED) DID NOT REMEMBER THE DOSE UNIT) (IF NEEDED) (STARTED MANY YEARS A
     Route: 048
  10. OMEPRAZOLE. [Concomitant]
     Active Substance: OMEPRAZOLE
     Indication: COLITIS
  11. PARACETAMOL [Concomitant]
     Active Substance: ACETAMINOPHEN
     Indication: SPINAL PAIN
     Dosage: 1, UNK (IN THE MORNING AND AT NIGHT)(MANY YEARS AGO (BEFORE THE MEDICATION NILOTINIB))
     Route: 048
  12. AAS PROTECT [Concomitant]
     Active Substance: ASPIRIN
     Indication: INFARCTION
     Dosage: 1 UNK (AT NIGHT) (STARTED APPROXIMATELY 15 YEARS AGO)
     Route: 048
  13. RIOPAN [Concomitant]
     Indication: COLITIS

REACTIONS (9)
  - Discomfort [Recovered/Resolved]
  - Weight decreased [Not Recovered/Not Resolved]
  - Off label use [Unknown]
  - Erythema [Recovered/Resolved]
  - Coronavirus test positive [Recovered/Resolved]
  - Blood pressure increased [Recovered/Resolved]
  - Hiatus hernia [Not Recovered/Not Resolved]
  - Pain [Not Recovered/Not Resolved]
  - Diverticulum [Not Recovered/Not Resolved]

NARRATIVE: CASE EVENT DATE: 202007
